FAERS Safety Report 10417783 (Version 1)
Quarter: 2014Q2

REPORT INFORMATION
  Report Type: Spontaneous
  Country: US (occurrence: None)
  Receive Date: 20140609
  Receipt Date: 20140609
  Transmission Date: 20141212
  Serious: No
  Sender: FDA-Public Use
  Company Number: 2014TUS002201

PATIENT
  Age: 51 Year
  Sex: Female

DRUGS (1)
  1. BRINTELLIX [Suspect]
     Indication: DEPRESSION
     Route: 048

REACTIONS (3)
  - Palpitations [None]
  - Hot flush [None]
  - Mood altered [None]
